FAERS Safety Report 9665219 (Version 2)
Quarter: 2014Q1

REPORT INFORMATION
  Report Type: Spontaneous
  Country: DK (occurrence: DE)
  Receive Date: 20131101
  Receipt Date: 20140224
  Transmission Date: 20141002
  Serious: Yes (Other)
  Sender: FDA-Public Use
  Company Number: DE-FRI-1000050702

PATIENT
  Age: 78 Year
  Sex: Female
  Weight: 61 kg

DRUGS (4)
  1. ESCITALOPRAM ORAL SOLUTION [Suspect]
     Indication: DEPRESSION
     Dosage: 15 MG
     Route: 048
     Dates: start: 201307, end: 201309
  2. LYRICA [Suspect]
     Indication: DEPRESSION
     Dosage: 25 MG
     Route: 048
     Dates: start: 201307
  3. LYRICA [Suspect]
     Indication: ANXIETY
  4. VASOMOTAL [Concomitant]

REACTIONS (2)
  - Intestinal haemorrhage [Not Recovered/Not Resolved]
  - Colitis ulcerative [Not Recovered/Not Resolved]
